FAERS Safety Report 4848646-0 (Version None)
Quarter: 2005Q4

REPORT INFORMATION
  Report Type: 
  Country: None (occurrence: None)
  Receive Date: 20051206
  Receipt Date: 20051123
  Transmission Date: 20060501
  Serious: Yes (Hospitalization)
  Sender: FDA-Public Use
  Company Number: 2005160572

PATIENT
  Sex: Female

DRUGS (1)
  1. LYRICA [Suspect]
     Indication: POST HERPETIC NEURALGIA
     Dosage: (DAILY), ORAL
     Route: 048
     Dates: start: 20050101

REACTIONS (4)
  - DIPLOPIA [None]
  - PARESIS [None]
  - PNEUMONIA [None]
  - VITH NERVE DISORDER [None]
